FAERS Safety Report 6802296-5 (Version None)
Quarter: 2010Q2

REPORT INFORMATION
  Report Type: 
  Country: None (occurrence: None)
  Receive Date: 20100628
  Receipt Date: 20100621
  Transmission Date: 20101027
  Serious: No
  Sender: FDA-Public Use
  Company Number: US-BIOGENIDEC-2010BI008748

PATIENT
  Sex: Female

DRUGS (4)
  1. TYSABRI [Suspect]
     Indication: MULTIPLE SCLEROSIS
     Route: 042
     Dates: start: 20050101, end: 20050101
  2. TYSABRI [Suspect]
     Indication: CROHN'S DISEASE
     Route: 042
     Dates: start: 20050101, end: 20050101
  3. TYSABRI [Suspect]
     Route: 042
     Dates: start: 20100319
  4. TYSABRI [Suspect]
     Route: 042
     Dates: start: 20100319

REACTIONS (10)
  - ASTHENIA [None]
  - DEVICE FAILURE [None]
  - FATIGUE [None]
  - FEELING COLD [None]
  - FEELING HOT [None]
  - PAIN [None]
  - POOR QUALITY SLEEP [None]
  - STRESS [None]
  - TREMOR [None]
  - WEIGHT INCREASED [None]
